FAERS Safety Report 21515894 (Version 1)
Quarter: 2022Q4

REPORT INFORMATION
  Report Type: Spontaneous
  Country: JP (occurrence: JP)
  Receive Date: 20221027
  Receipt Date: 20221027
  Transmission Date: 20230113
  Serious: Yes (Hospitalization)
  Sender: FDA-Public Use
  Company Number: JP-Eisai-202201872_LEN-HCC_P_1

PATIENT
  Age: 70 Year
  Sex: Male

DRUGS (5)
  1. LENVIMA [Suspect]
     Active Substance: LENVATINIB
     Indication: Hepatocellular carcinoma
     Route: 048
  2. LENVIMA [Suspect]
     Active Substance: LENVATINIB
     Dosage: AFTER DINNER
     Route: 048
     Dates: start: 20220330, end: 2022
  3. LENVIMA [Suspect]
     Active Substance: LENVATINIB
     Dosage: FROM MONDAY TO FRIDAY (5 DAYS ON/2 DAYS OFF SCHEDULE), AFTER DINNER
     Route: 048
     Dates: start: 2022
  4. AMLODIPINE [Concomitant]
     Active Substance: AMLODIPINE BESYLATE
     Indication: Product used for unknown indication
     Dosage: AFTER DINNER
     Route: 048
  5. LEVOTHYROXINE [Concomitant]
     Active Substance: LEVOTHYROXINE
     Indication: Product used for unknown indication
     Dosage: AFTER BREAKFAST
     Route: 048

REACTIONS (1)
  - Proteinuria [Recovering/Resolving]
